FAERS Safety Report 5815746-8 (Version None)
Quarter: 2008Q3

REPORT INFORMATION
  Report Type: 
  Country: None (occurrence: None)
  Receive Date: 20080721
  Receipt Date: 20080312
  Transmission Date: 20090109
  Serious: No
  Sender: FDA-Public Use
  Company Number: US-KINGPHARMUSA00001-K200800330

PATIENT

DRUGS (2)
  1. BICILLIN L-A [Suspect]
     Indication: STREPTOCOCCAL INFECTION
     Dosage: 600000 U, SINGLE INTO RIGHT THIGH
     Dates: start: 20080304, end: 20080304
  2. BICILLIN L-A [Suspect]
     Indication: VOMITING
     Dosage: 600000 U, SINGLE INTO LEFT THIGH
     Dates: start: 20080304, end: 20080304

REACTIONS (4)
  - INJECTION SITE ABSCESS [None]
  - INJECTION SITE ERYTHEMA [None]
  - INJECTION SITE SWELLING [None]
  - PURULENT DISCHARGE [None]
